FAERS Safety Report 8814064 (Version 2)
Quarter: 2012Q4

REPORT INFORMATION
  Report Type: 
  Country: US (occurrence: US)
  Receive Date: 20120928
  Receipt Date: 20121016
  Transmission Date: 20130627
  Serious: No
  Sender: FDA-Public Use
  Company Number: US-PFIZER INC-2012238413

PATIENT
  Age: 60 Year
  Sex: Male
  Weight: 90.7 kg

DRUGS (2)
  1. ADVIL [Suspect]
     Indication: MUSCLE STRAIN
     Dosage: 400 mg, two-three times a day
  2. SYNTHROID [Concomitant]
     Indication: HYPOTHYROIDISM
     Dosage: 20 mg, daily

REACTIONS (3)
  - Poor quality drug administered [Unknown]
  - Muscle strain [Unknown]
  - Product odour abnormal [Unknown]
